FAERS Safety Report 15832454 (Version 1)
Quarter: 2019Q1

REPORT INFORMATION
  Report Type: Report from Study
  Country: None (occurrence: US)
  Receive Date: 20190116
  Receipt Date: 20190116
  Transmission Date: 20190417
  Serious: Yes (Hospitalization, Other)
  Sender: FDA-Public Use
  Company Number: US-ABBVIE-18K-163-2606278-00

PATIENT
  Age: 32 Year
  Sex: Female
  Weight: 69.46 kg

DRUGS (8)
  1. HEPARIN [Suspect]
     Active Substance: HEPARIN SODIUM
     Indication: PRODUCT USED FOR UNKNOWN INDICATION
     Route: 065
  2. DELZICOL [Concomitant]
     Active Substance: MESALAMINE
     Indication: PRODUCT USED FOR UNKNOWN INDICATION
  3. HUMIRA [Suspect]
     Active Substance: ADALIMUMAB
     Route: 058
     Dates: start: 201709, end: 201805
  4. IRON [Concomitant]
     Active Substance: IRON
     Indication: PRODUCT USED FOR UNKNOWN INDICATION
  5. PROTONIX [Concomitant]
     Active Substance: PANTOPRAZOLE SODIUM
     Indication: PRODUCT USED FOR UNKNOWN INDICATION
  6. HUMIRA [Suspect]
     Active Substance: ADALIMUMAB
     Indication: CROHN^S DISEASE
     Route: 058
     Dates: start: 2010, end: 2013
  7. VITAMIN B12 [Concomitant]
     Active Substance: CYANOCOBALAMIN
     Indication: PRODUCT USED FOR UNKNOWN INDICATION
  8. HUMIRA [Suspect]
     Active Substance: ADALIMUMAB
     Route: 058
     Dates: start: 20190107

REACTIONS (15)
  - Gastrointestinal perforation [Recovered/Resolved]
  - Escherichia infection [Recovered/Resolved]
  - Procedural pain [Not Recovered/Not Resolved]
  - Crohn^s disease [Unknown]
  - Gastric ulcer haemorrhage [Not Recovered/Not Resolved]
  - Intestinal ulcer [Unknown]
  - Hepatobiliary scan abnormal [Recovered/Resolved]
  - Intra-abdominal fluid collection [Recovered/Resolved]
  - Colectomy [Unknown]
  - Sepsis [Unknown]
  - Candida infection [Recovered/Resolved]
  - Postoperative adhesion [Unknown]
  - Intestinal resection [Unknown]
  - Large intestinal stenosis [Not Recovered/Not Resolved]
  - Food intolerance [Recovered/Resolved]

NARRATIVE: CASE EVENT DATE: 2012
